FAERS Safety Report 13238843 (Version 1)
Quarter: 2017Q1

REPORT INFORMATION
  Report Type: Spontaneous
  Country: US (occurrence: US)
  Receive Date: 20170215
  Receipt Date: 20170215
  Transmission Date: 20170428
  Serious: No
  Sender: FDA-Public Use
  Company Number: None

PATIENT
  Sex: Female

DRUGS (1)
  1. IBRANCE [Suspect]
     Active Substance: PALBOCICLIB
     Indication: OVARIAN CANCER
     Dosage: DAILY FOR 2 WEEKS, Q28 DAYS
     Route: 048
     Dates: start: 20161103

REACTIONS (2)
  - Cough [None]
  - Dyspnoea [None]
